FAERS Safety Report 21007234 (Version 3)
Quarter: 2022Q3

REPORT INFORMATION
  Report Type: Report from Study
  Country: US (occurrence: US)
  Receive Date: 20220625
  Receipt Date: 20220930
  Transmission Date: 20221026
  Serious: Yes (Other)
  Sender: FDA-Public Use
  Company Number: US-NOVARTISPH-NVSC2022US143997

PATIENT
  Sex: Male

DRUGS (3)
  1. ENTRESTO [Suspect]
     Active Substance: SACUBITRIL\VALSARTAN
     Indication: Product used for unknown indication
     Dosage: 1 DOSAGE FORM, BID (49/51 MG)
     Route: 048
     Dates: start: 20220611
  2. JARDIANCE [Suspect]
     Active Substance: EMPAGLIFLOZIN
     Indication: Product used for unknown indication
     Dosage: UNK
     Route: 065
  3. METOPROLOL [Suspect]
     Active Substance: METOPROLOL
     Indication: Product used for unknown indication
     Dosage: 100 MG, BID
     Route: 048

REACTIONS (9)
  - Ventricular tachycardia [Unknown]
  - Ejection fraction decreased [Recovering/Resolving]
  - Weight decreased [Unknown]
  - Fluid retention [Unknown]
  - Cognitive disorder [Recovering/Resolving]
  - Orthopnoea [Unknown]
  - Heart rate decreased [Recovering/Resolving]
  - Nausea [Unknown]
  - Blood pressure systolic decreased [Unknown]
